FAERS Safety Report 19213368 (Version 7)
Quarter: 2022Q3

REPORT INFORMATION
  Report Type: Report from Study
  Country: AR (occurrence: AR)
  Receive Date: 20210504
  Receipt Date: 20220912
  Transmission Date: 20221026
  Serious: Yes (Hospitalization, Other)
  Sender: FDA-Public Use
  Company Number: NVSC2021AR015516

PATIENT
  Sex: Male

DRUGS (8)
  1. COSENTYX [Suspect]
     Active Substance: SECUKINUMAB
     Indication: Ankylosing spondylitis
     Dosage: 1 DF, QMO
     Route: 058
     Dates: start: 2018
  2. COSENTYX [Suspect]
     Active Substance: SECUKINUMAB
     Dosage: 150 MG, QMO
     Route: 058
     Dates: start: 20190313
  3. COSENTYX [Suspect]
     Active Substance: SECUKINUMAB
     Dosage: 1 DF, QMO
     Route: 058
     Dates: start: 202012
  4. COSENTYX [Suspect]
     Active Substance: SECUKINUMAB
     Dosage: 1 DF, QMO
     Route: 058
     Dates: start: 20210405
  5. COSENTYX [Suspect]
     Active Substance: SECUKINUMAB
     Dosage: 150 MG, QMO
     Route: 065
     Dates: end: 20220203
  6. COSENTYX [Suspect]
     Active Substance: SECUKINUMAB
     Dosage: 150 MG, QMO
     Route: 065
     Dates: start: 20220216
  7. PANTOPRAZOLE [Concomitant]
     Active Substance: PANTOPRAZOLE
     Indication: Product used for unknown indication
     Dosage: 1 DF (40 MG), QD (FASTING AND DINNER)
     Route: 065
  8. CALMADOR PLUS [Concomitant]
     Indication: Pain
     Dosage: 1 DF (37.5 MG/ 325 MG), UNKNOWN
     Route: 065

REACTIONS (32)
  - Appendicitis [Unknown]
  - Abdominal pain [Recovered/Resolved]
  - Pain [Recovered/Resolved]
  - Urinary tract infection [Recovering/Resolving]
  - Dysuria [Recovering/Resolving]
  - Irritable bowel syndrome [Unknown]
  - Change of bowel habit [Unknown]
  - Pelvic pain [Unknown]
  - Computerised tomogram pelvis abnormal [Unknown]
  - Trismus [Unknown]
  - Haemoglobin decreased [Unknown]
  - Blood bilirubin unconjugated increased [Unknown]
  - Hepatic steatosis [Unknown]
  - Degenerative bone disease [Unknown]
  - Pleural thickening [Unknown]
  - Lung opacity [Unknown]
  - Dysphagia [Unknown]
  - Haematocrit decreased [Unknown]
  - Arteriosclerosis [Unknown]
  - Spinal flattening [Unknown]
  - Hepatic mass [Unknown]
  - Irritable bowel syndrome [Recovered/Resolved]
  - Diverticulum intestinal [Unknown]
  - Computerised tomogram abdomen abnormal [Unknown]
  - Fall [Unknown]
  - Injury [Unknown]
  - Skin infection [Unknown]
  - Hypersensitivity [Unknown]
  - Disease progression [Unknown]
  - Arthralgia [Unknown]
  - Localised infection [Recovered/Resolved]
  - Product dose omission issue [Unknown]

NARRATIVE: CASE EVENT DATE: 20200101
